FAERS Safety Report 13460527 (Version 4)
Quarter: 2017Q4

REPORT INFORMATION
  Report Type: Spontaneous
  Country: US (occurrence: US)
  Receive Date: 20170420
  Receipt Date: 20171024
  Transmission Date: 20180320
  Serious: No
  Sender: FDA-Public Use
  Company Number: US-PFIZER INC-2017171370

PATIENT
  Age: 62 Year
  Sex: Female
  Weight: 63.49 kg

DRUGS (3)
  1. IBRANCE [Suspect]
     Active Substance: PALBOCICLIB
     Indication: BREAST CANCER METASTATIC
     Dosage: 75 MG, CYCLIC (DAILY, DAY 1-21 EVERY 28 DAYS)
     Route: 048
     Dates: start: 20170302
  2. IBRANCE [Suspect]
     Active Substance: PALBOCICLIB
     Dosage: 100 MG, CYCLIC (DAYS 1-21 EVERY 28 DAYS)
     Route: 048
     Dates: start: 20170302
  3. IBRANCE [Suspect]
     Active Substance: PALBOCICLIB
     Dosage: 100 MG, CYCLIC (DAYS 1-21 EVERY 28 DAYS)
     Route: 048
     Dates: start: 20170302, end: 201708

REACTIONS (7)
  - Lymphadenopathy [Unknown]
  - Breast pain [Unknown]
  - Blood blister [Unknown]
  - Dizziness [Unknown]
  - Nausea [Unknown]
  - Alopecia [Unknown]
  - Treatment noncompliance [Unknown]
